FAERS Safety Report 10219338 (Version 2)
Quarter: 2014Q2

REPORT INFORMATION
  Report Type: Report from Study
  Country: FR (occurrence: FR)
  Receive Date: 20140605
  Receipt Date: 20140605
  Transmission Date: 20141212
  Serious: Yes (Hospitalization)
  Sender: FDA-Public Use
  Company Number: PHHY2012FR080629

PATIENT
  Age: 72 Year
  Sex: Female
  Weight: 47 kg

DRUGS (13)
  1. ACLASTA/ZOLEDRONATE [Suspect]
     Indication: OSTEOPOROSIS
     Route: 042
     Dates: start: 20120130
  2. PARACETAMOL [Concomitant]
     Dates: start: 2010, end: 201112
  3. PARACETAMOL [Concomitant]
     Dates: start: 201204
  4. ASPEGIC [Concomitant]
     Dates: start: 201201
  5. LYRICA [Concomitant]
     Dates: start: 201201, end: 201205
  6. RIVOTRIL [Concomitant]
     Dates: end: 201202
  7. RIVOTRIL [Concomitant]
     Dates: start: 201204
  8. APRANAX [Concomitant]
     Dates: start: 201204, end: 201211
  9. DAFALGAN CODEINE [Concomitant]
     Dates: start: 201204
  10. STRUCTOFLEX [Concomitant]
     Dates: start: 2012
  11. CHOLECALCIFEROL [Concomitant]
     Dates: start: 2012, end: 2012
  12. VOLTAREN//DICLOFENAC [Concomitant]
     Dosage: UNK
  13. HYDROCORTANCYL [Concomitant]
     Dates: start: 2010, end: 201112

REACTIONS (3)
  - Intervertebral disc protrusion [Unknown]
  - Back pain [Unknown]
  - Spondylolisthesis [Not Recovered/Not Resolved]
